FAERS Safety Report 18202833 (Version 1)
Quarter: 2020Q3

REPORT INFORMATION
  Report Type: Spontaneous
  Country: MY (occurrence: MY)
  Receive Date: 20200827
  Receipt Date: 20200827
  Transmission Date: 20201103
  Serious: Yes (Other)
  Sender: FDA-Public Use
  Company Number: NVSC2020MY228965

PATIENT
  Age: 50 Year
  Sex: Female

DRUGS (2)
  1. KRYXANA [Suspect]
     Active Substance: RIBOCICLIB
     Indication: BREAST CANCER STAGE III
     Dosage: 600 MG, QD
     Route: 065
  2. FEMARA [Suspect]
     Active Substance: LETROZOLE
     Indication: BREAST CANCER STAGE III
     Dosage: 2.5 MG, QD
     Route: 065

REACTIONS (9)
  - Mediastinal mass [Unknown]
  - Anaemia [Unknown]
  - Alopecia [Unknown]
  - Pleural mass [Unknown]
  - Pulmonary mass [Unknown]
  - Pruritus [Unknown]
  - Dry skin [Unknown]
  - Neutropenia [Unknown]
  - Pleural effusion [Unknown]

NARRATIVE: CASE EVENT DATE: 201903
